FAERS Safety Report 18614263 (Version 1)
Quarter: 2020Q4

REPORT INFORMATION
  Report Type: Spontaneous
  Country: HR (occurrence: HR)
  Receive Date: 20201215
  Receipt Date: 20201215
  Transmission Date: 20210114
  Serious: Yes (Other)
  Sender: FDA-Public Use
  Company Number: HR-JNJFOC-20201217276

PATIENT
  Age: 83 Year
  Sex: Female
  Weight: 62 kg

DRUGS (9)
  1. DICLOFENAC [Concomitant]
     Active Substance: DICLOFENAC
     Indication: PAIN
     Dosage: UNK, AS NEEDED
     Route: 048
  2. TRAMADOL/APAP [Suspect]
     Active Substance: ACETAMINOPHEN\TRAMADOL
     Indication: POLYARTHRITIS
     Dosage: 0.5 DOSAGE FORM, 1/DAY
     Route: 048
     Dates: start: 20200730
  3. LEXILIUM [Interacting]
     Active Substance: BROMAZEPAM
     Indication: INSOMNIA
     Dosage: 3 MILLIGRAM, 1/DAY
     Route: 048
     Dates: start: 20170913
  4. LEXILIUM [Interacting]
     Active Substance: BROMAZEPAM
     Indication: ANXIETY DISORDER
     Route: 065
  5. MARTEFARIN [Concomitant]
     Active Substance: WARFARIN
     Indication: FEMUR FRACTURE
     Dosage: UNK
     Route: 048
     Dates: start: 20200203
  6. VENTOLIN [Concomitant]
     Active Substance: ALBUTEROL SULFATE
     Indication: CHRONIC OBSTRUCTIVE PULMONARY DISEASE
     Dosage: 100 MICROGRAM, 1/DAY
     Route: 055
     Dates: start: 2014
  7. IBUPROFEN. [Concomitant]
     Active Substance: IBUPROFEN
     Indication: PAIN
     Dosage: UNK UNK, AS NEEDED
     Route: 048
  8. CO PERINEVA [Concomitant]
     Active Substance: INDAPAMIDE\PERINDOPRIL ERBUMINE
     Indication: ESSENTIAL HYPERTENSION
     Dosage: 1 DOSAGE FORM, 1/DAY
     Route: 048
     Dates: start: 20200821
  9. OLODATEROL HYDROCHLORIDE;TIOTROPIUM BROMIDE MONOHYDRATE [Concomitant]
     Active Substance: OLODATEROL HYDROCHLORIDE\TIOTROPIUM BROMIDE MONOHYDRATE
     Indication: CHRONIC OBSTRUCTIVE PULMONARY DISEASE
     Dosage: 1 DOSAGE FORM, 1/DAY
     Route: 055
     Dates: start: 20200220

REACTIONS (4)
  - Drug interaction [Unknown]
  - Wrong technique in product usage process [Not Recovered/Not Resolved]
  - Hangover [Not Recovered/Not Resolved]
  - Somnolence [Not Recovered/Not Resolved]

NARRATIVE: CASE EVENT DATE: 20200806
